FAERS Safety Report 22519061 (Version 2)
Quarter: 2023Q2

REPORT INFORMATION
  Report Type: Spontaneous
  Country: SI (occurrence: SI)
  Receive Date: 20230605
  Receipt Date: 20230622
  Transmission Date: 20230722
  Serious: Yes (Hospitalization, Other)
  Sender: FDA-Public Use
  Company Number: SI-002147023-NVSC2023SI122020

PATIENT
  Age: 42 Year
  Sex: Male
  Weight: 62 kg

DRUGS (2)
  1. IPILIMUMAB [Suspect]
     Active Substance: IPILIMUMAB
     Indication: Product used for unknown indication
  2. NIVOLUMAB [Suspect]
     Active Substance: NIVOLUMAB
     Indication: Product used for unknown indication

REACTIONS (2)
  - Immune-mediated enterocolitis [Not Recovered/Not Resolved]
  - Metastases to soft tissue [Unknown]
